FAERS Safety Report 17175182 (Version 1)
Quarter: 2019Q4

REPORT INFORMATION
  Report Type: Spontaneous
  Country: US (occurrence: US)
  Receive Date: 20191219
  Receipt Date: 20191219
  Transmission Date: 20200122
  Serious: No
  Sender: FDA-Public Use
  Company Number: US-UCBSA-111655

PATIENT
  Age: 56 Year
  Sex: Female
  Weight: 92.07 kg

DRUGS (12)
  1. VOLTAREN [Concomitant]
     Active Substance: DICLOFENAC SODIUM
  2. ENBRIL [Concomitant]
     Dosage: FALL OF 2014
     Dates: start: 201303, end: 2014
  3. CITOLAPRAM [Concomitant]
     Indication: AFFECTIVE DISORDER
     Dosage: DAILY DOSE :20MG
  4. OMEGA XL [Concomitant]
     Active Substance: DIETARY SUPPLEMENT
     Indication: NUTRITIONAL SUPPLEMENTATION
  5. LOSARTAN. [Concomitant]
     Active Substance: LOSARTAN
     Indication: HYPERTENSION
     Dosage: DOSE: 50/12.5 MG ONCE DAILY
  6. OMEPRAZOLE. [Concomitant]
     Active Substance: OMEPRAZOLE
     Indication: ABDOMINAL DISCOMFORT
     Dosage: 20 MG, ONCE DAILY (QD)
  7. METHOTREXATE. [Concomitant]
     Active Substance: METHOTREXATE
     Indication: RHEUMATOID ARTHRITIS
     Dosage: DOSE :2.5 MG 4 TIMES WEEKLY
     Dates: start: 2010
  8. DICLOFENAC SODIUM. [Concomitant]
     Active Substance: DICLOFENAC SODIUM
     Indication: INFLAMMATION
     Dosage: 75 MG, 2X/DAY (BID)
     Dates: start: 2010
  9. SPIRONOLACTONE. [Concomitant]
     Active Substance: SPIRONOLACTONE
     Dosage: 2.5 MG, ONCE DAILY (QD)
  10. FOLIC ACID. [Concomitant]
     Active Substance: FOLIC ACID
     Dosage: ONCE DAILY
  11. CIMZIA [Suspect]
     Active Substance: CERTOLIZUMAB PEGOL
     Indication: RHEUMATOID ARTHRITIS
     Dosage: 2 SHOTS PER MONTH EVERY 2 WEEKS
     Dates: start: 201312
  12. WOMEN VITAMINS [Concomitant]

REACTIONS (3)
  - Pain [Not Recovered/Not Resolved]
  - Intervertebral disc disorder [Not Recovered/Not Resolved]
  - Hypoaesthesia [Recovering/Resolving]

NARRATIVE: CASE EVENT DATE: 201312
